FAERS Safety Report 4817308-8 (Version None)
Quarter: 2005Q4

REPORT INFORMATION
  Report Type: 
  Country: None (occurrence: None)
  Receive Date: 20051018
  Receipt Date: 20050211
  Transmission Date: 20060501
  Serious: Yes (Other)
  Sender: FDA-Public Use
  Company Number: PHEH2004US11833

PATIENT
  Age: 78 Year
  Sex: Female

DRUGS (9)
  1. ZOMETA [Suspect]
     Indication: BREAST CANCER METASTATIC
  2. AREDIA [Suspect]
     Indication: BREAST CANCER METASTATIC
     Dosage: 90MG QMO
     Dates: start: 20011030, end: 20020325
  3. NEURONTIN [Concomitant]
  4. TAMOXIFEN [Concomitant]
  5. SYNTHROID [Concomitant]
  6. VITAMIN E [Concomitant]
  7. MULTIVITAMINS (ASCORBIC ACID, ERGOCALCIFEROL, FOLIC ACID, NICOTINAMIDE [Concomitant]
  8. CALCIUM CITRATE [Concomitant]
  9. HYDROCHLOROTHIAZIDE [Concomitant]

REACTIONS (5)
  - BONE DISORDER [None]
  - INFLAMMATION [None]
  - OSTEONECROSIS [None]
  - SEQUESTRECTOMY [None]
  - TOOTH EXTRACTION [None]
